FAERS Safety Report 5770450-X (Version None)
Quarter: 2008Q2

REPORT INFORMATION
  Report Type: 
  Country: None (occurrence: None)
  Receive Date: 20080613
  Receipt Date: 20080516
  Transmission Date: 20081010
  Serious: No
  Sender: FDA-Public Use
  Company Number: US-ABBOTT-08P-163-0449839-00

PATIENT
  Sex: Female

DRUGS (8)
  1. HUMIRA [Suspect]
     Indication: CROHN'S DISEASE
     Dates: start: 20080416, end: 20080516
  2. HUMIRA [Suspect]
     Route: 058
     Dates: start: 20080430, end: 20080430
  3. HUMIRA [Suspect]
     Route: 058
     Dates: start: 20080514
  4. SERTRALINE [Concomitant]
     Indication: DRUG USE FOR UNKNOWN INDICATION
  5. ESTROGENS CONJUGATED [Concomitant]
     Indication: DRUG USE FOR UNKNOWN INDICATION
  6. ZOLPIDEM TARTRATE [Concomitant]
     Indication: DRUG USE FOR UNKNOWN INDICATION
  7. PROPACET 100 [Concomitant]
     Indication: DRUG USE FOR UNKNOWN INDICATION
  8. CYCLOSPORINE [Concomitant]
     Indication: DRUG USE FOR UNKNOWN INDICATION

REACTIONS (5)
  - INJECTION SITE ERYTHEMA [None]
  - INJECTION SITE PRURITUS [None]
  - INJECTION SITE RASH [None]
  - INJECTION SITE REACTION [None]
  - INJECTION SITE SWELLING [None]
